FAERS Safety Report 12138325 (Version 1)
Quarter: 2016Q1

REPORT INFORMATION
  Report Type: Report from Study
  Country: US (occurrence: US)
  Receive Date: 20160302
  Receipt Date: 20160302
  Transmission Date: 20160526
  Serious: No
  Sender: FDA-Public Use
  Company Number: PHEH2016US004886

PATIENT
  Age: 61 Year
  Sex: Male

DRUGS (1)
  1. TEGRETOL XR [Suspect]
     Active Substance: CARBAMAZEPINE
     Indication: PRODUCT USED FOR UNKNOWN INDICATION
     Dosage: 100 MG, QD
     Route: 048

REACTIONS (6)
  - Speech disorder [Unknown]
  - Oral discomfort [Unknown]
  - Muscle spasms [Unknown]
  - Neuralgia [Not Recovered/Not Resolved]
  - Burning sensation [Unknown]
  - Eating disorder [Unknown]

NARRATIVE: CASE EVENT DATE: 20160225
